FAERS Safety Report 6524697-5 (Version None)
Quarter: 2009Q4

REPORT INFORMATION
  Report Type: 
  Country: None (occurrence: None)
  Receive Date: 20091214
  Receipt Date: 20090922
  Transmission Date: 20100525
  Serious: Yes (Other)
  Sender: FDA-Public Use
  Company Number: 658604

PATIENT
  Age: 56 Year
  Sex: Male
  Weight: 74.8 kg

DRUGS (2)
  1. PEGASYS [Suspect]
     Indication: HEPATITIS C
     Dosage: 180 UG 1 PER WEEK
     Dates: start: 20090416, end: 20090910
  2. RIBASPHERE [Suspect]
     Indication: HEPATITIS C
     Dosage: 1000 MG DAILY
     Dates: start: 20090416, end: 20090901

REACTIONS (3)
  - FATIGUE [None]
  - PLATELET COUNT DECREASED [None]
  - WEIGHT DECREASED [None]
